FAERS Safety Report 18026708 (Version 2)
Quarter: 2020Q3

REPORT INFORMATION
  Report Type: Spontaneous
  Country: US (occurrence: US)
  Receive Date: 20200716
  Receipt Date: 20200902
  Transmission Date: 20201103
  Serious: No
  Sender: FDA-Public Use
  Company Number: US-ASTRAZENECA-2020SE89001

PATIENT
  Age: 816 Month
  Sex: Male
  Weight: 115.4 kg

DRUGS (2)
  1. TOUJEO [Concomitant]
     Active Substance: INSULIN GLARGINE
     Indication: DIABETES MELLITUS
     Dosage: 300USP UNITS DAILY
     Route: 058
  2. BYDUREON BCISE [Suspect]
     Active Substance: EXENATIDE
     Indication: DIABETES MELLITUS
     Route: 058
     Dates: start: 202003

REACTIONS (4)
  - Intentional device misuse [Unknown]
  - Drug delivery system malfunction [Unknown]
  - Weight decreased [Unknown]
  - Device leakage [Unknown]

NARRATIVE: CASE EVENT DATE: 202006
